FAERS Safety Report 7800353-8 (Version None)
Quarter: 2011Q4

REPORT INFORMATION
  Report Type: 
  Country: None (occurrence: None)
  Receive Date: 20111006
  Receipt Date: 20110923
  Transmission Date: 20120403
  Serious: Yes (Other)
  Sender: FDA-Public Use
  Company Number: US-ASTRAZENECA-2011SE56758

PATIENT
  Age: 55 Year
  Sex: Female
  Weight: 95.3 kg

DRUGS (4)
  1. SEROQUEL [Suspect]
     Route: 048
     Dates: start: 20110101
  2. BLOOD PRESSURE PILLS [Concomitant]
  3. SEROQUEL [Suspect]
     Indication: SLEEP TERROR
     Route: 048
     Dates: start: 20080101, end: 20110101
  4. SEROQUEL [Suspect]
     Route: 048
     Dates: start: 20110101, end: 20110101

REACTIONS (7)
  - POST-TRAUMATIC STRESS DISORDER [None]
  - SINUS TACHYCARDIA [None]
  - OFF LABEL USE [None]
  - STAPHYLOCOCCAL INFECTION [None]
  - DRUG DEPENDENCE [None]
  - WEIGHT INCREASED [None]
  - DRUG INEFFECTIVE FOR UNAPPROVED INDICATION [None]
